FAERS Safety Report 5844145-8 (Version None)
Quarter: 2008Q3

REPORT INFORMATION
  Report Type: 
  Country: None (occurrence: None)
  Receive Date: 20080813
  Receipt Date: 20080801
  Transmission Date: 20090109
  Serious: Yes (Other)
  Sender: FDA-Public Use
  Company Number: BR-PFIZER INC-2008065262

PATIENT
  Sex: Female
  Weight: 64 kg

DRUGS (4)
  1. GEODON [Suspect]
     Indication: DEPRESSION
     Route: 048
  2. GEODON [Suspect]
     Indication: AFFECTIVE DISORDER
  3. TRILEPTAL [Concomitant]
  4. DIOVAN [Concomitant]

REACTIONS (3)
  - DYSPHONIA [None]
  - FALL [None]
  - HUMERUS FRACTURE [None]
